FAERS Safety Report 23227805 (Version 1)
Quarter: 2023Q4

REPORT INFORMATION
  Report Type: Report from Study
  Country: CO (occurrence: CO)
  Receive Date: 20231125
  Receipt Date: 20231125
  Transmission Date: 20240110
  Serious: Yes (Other)
  Sender: FDA-Public Use
  Company Number: CO-ABBVIE-5511482

PATIENT
  Age: 66 Year
  Sex: Female

DRUGS (2)
  1. SKYRIZI [Suspect]
     Active Substance: RISANKIZUMAB-RZAA
     Indication: Psoriasis
     Dosage: FORM STRENGTH: 75 MILLIGRAM
     Route: 058
     Dates: start: 20220919, end: 20230523
  2. ESOMEPRAZOLE [Concomitant]
     Active Substance: ESOMEPRAZOLE
     Indication: Chronic gastritis

REACTIONS (8)
  - Ingrowing nail [Recovering/Resolving]
  - Hepatic steatosis [Not Recovered/Not Resolved]
  - Purulent discharge [Recovering/Resolving]
  - Nail discolouration [Recovering/Resolving]
  - Chronic gastritis [Not Recovered/Not Resolved]
  - Skin discolouration [Recovering/Resolving]
  - Blood glucose increased [Unknown]
  - Memory impairment [Not Recovered/Not Resolved]

NARRATIVE: CASE EVENT DATE: 20230801
